FAERS Safety Report 19143929 (Version 1)
Quarter: 2021Q2

REPORT INFORMATION
  Report Type: Spontaneous
  Country: NE (occurrence: NE)
  Receive Date: 20210416
  Receipt Date: 20210416
  Transmission Date: 20210717
  Serious: No
  Sender: FDA-Public Use
  Company Number: NE-LUPIN PHARMACEUTICALS INC.-2021-04645

PATIENT

DRUGS (7)
  1. ETHAMBUTOL [Suspect]
     Active Substance: ETHAMBUTOL HYDROCHLORIDE
     Indication: TUBERCULOSIS
     Dosage: UNK
     Route: 065
  2. PYRAZINAMIDE. [Suspect]
     Active Substance: PYRAZINAMIDE
     Indication: TUBERCULOSIS
     Dosage: UNK
     Route: 065
  3. ISONIAZID. [Suspect]
     Active Substance: ISONIAZID
     Indication: TUBERCULOSIS
     Dosage: 10 MG/KG?1
     Route: 065
  4. MOXIFLOXACIN HCL [Suspect]
     Active Substance: MOXIFLOXACIN
     Indication: TUBERCULOSIS
     Dosage: UNK
     Route: 065
  5. KANAMYCIN [Suspect]
     Active Substance: KANAMYCIN A SULFATE
     Indication: TUBERCULOSIS
     Dosage: UNK
     Route: 065
  6. PROTHIONAMIDE [Suspect]
     Active Substance: PROTIONAMIDE
     Indication: TUBERCULOSIS
     Dosage: UNK
     Route: 065
  7. CLOFAZIMINE [Suspect]
     Active Substance: CLOFAZIMINE
     Indication: TUBERCULOSIS
     Dosage: UNK
     Route: 065

REACTIONS (1)
  - Anaemia [Unknown]
